FAERS Safety Report 4425153-0 (Version None)
Quarter: 2004Q3

REPORT INFORMATION
  Report Type: 
  Country: None (occurrence: None)
  Receive Date: 20040813
  Receipt Date: 20040804
  Transmission Date: 20050211
  Serious: Yes (Other)
  Sender: FDA-Public Use
  Company Number: PHNR2004AU01320

PATIENT
  Age: 25 Year
  Sex: Male

DRUGS (1)
  1. CLOZARIL [Suspect]
     Dosage: 0 - 250 MG/DAY
     Dates: start: 19991210, end: 20040803

REACTIONS (4)
  - DIABETES MELLITUS [None]
  - SALIVARY HYPERSECRETION [None]
  - SLEEP APNOEA SYNDROME [None]
  - WEIGHT INCREASED [None]
